FAERS Safety Report 4555591-7 (Version None)
Quarter: 2005Q1

REPORT INFORMATION
  Report Type: 
  Country: None (occurrence: None)
  Receive Date: 20050118
  Receipt Date: 20050118
  Transmission Date: 20050727
  Serious: Yes (Hospitalization)
  Sender: FDA-Public Use
  Company Number: None

PATIENT
  Age: 69 Year
  Sex: Female
  Weight: 64.8644 kg

DRUGS (2)
  1. DONOR LYMPHOCYTE INFUSION [Suspect]
     Indication: BREAST CANCER
     Dates: start: 20041202
  2. DONOR LYMPHOCYTE INFUSION [Suspect]
     Indication: RENAL CELL CARCINOMA STAGE UNSPECIFIED
     Dates: start: 20041202

REACTIONS (8)
  - BILIARY DYSKINESIA [None]
  - CHOLECYSTITIS [None]
  - CHOLELITHIASIS [None]
  - DIARRHOEA [None]
  - EJECTION FRACTION DECREASED [None]
  - GALLBLADDER ENLARGEMENT [None]
  - PORTAL HYPERTENSION [None]
  - RECTAL HAEMORRHAGE [None]
